FAERS Safety Report 20112302 (Version 2)
Quarter: 2021Q4

REPORT INFORMATION
  Report Type: Report from Study
  Country: DE (occurrence: DE)
  Receive Date: 20211125
  Receipt Date: 20211214
  Transmission Date: 20220303
  Serious: Yes (Hospitalization)
  Sender: FDA-Public Use
  Company Number: DE-SA-SAC20211121000020

PATIENT
  Age: 53 Year
  Sex: Female
  Weight: 80.4 kg

DRUGS (8)
  1. ISATUXIMAB [Suspect]
     Active Substance: ISATUXIMAB
     Indication: Plasma cell myeloma
     Dosage: 10 MG/KG, QOW
     Route: 042
     Dates: start: 20211108, end: 20211108
  2. ISATUXIMAB [Suspect]
     Active Substance: ISATUXIMAB
     Dosage: 10 MG/KG, QW
     Route: 042
     Dates: start: 20200518, end: 20200518
  3. LENALIDOMIDE [Suspect]
     Active Substance: LENALIDOMIDE
     Indication: Plasma cell myeloma
     Dosage: 10 MG, QD
     Route: 048
     Dates: start: 20211101, end: 20211101
  4. LENALIDOMIDE [Suspect]
     Active Substance: LENALIDOMIDE
     Dosage: 10 MG, QD
     Route: 048
     Dates: start: 20190902, end: 20190902
  5. BORTEZOMIB [Suspect]
     Active Substance: BORTEZOMIB
     Indication: Plasma cell myeloma
     Dosage: 1.3 MG/M2
     Route: 058
     Dates: start: 20191227, end: 20191227
  6. BORTEZOMIB [Suspect]
     Active Substance: BORTEZOMIB
     Dosage: 1.3 MG/M2
     Route: 058
     Dates: start: 20190902, end: 20190902
  7. DEXAMETHASONE [Suspect]
     Active Substance: DEXAMETHASONE
     Indication: Plasma cell myeloma
     Dosage: 20 MG, QW
     Route: 042
     Dates: start: 20200608, end: 20200608
  8. DEXAMETHASONE [Suspect]
     Active Substance: DEXAMETHASONE
     Dosage: 20 MG, DAYS 1, 2, 4, 5, 8, 9, 11, 12, 15, 22, 23, 25, 26, 29, 30, 32, AND 33
     Route: 042
     Dates: start: 20190902, end: 20190902

REACTIONS (1)
  - COVID-19 [Recovered/Resolved]

NARRATIVE: CASE EVENT DATE: 20211116
